FAERS Safety Report 12676123 (Version 1)
Quarter: 2016Q3

REPORT INFORMATION
  Report Type: Spontaneous
  Country: US (occurrence: None)
  Receive Date: 20160822
  Receipt Date: 20160822
  Transmission Date: 20161109
  Serious: Yes (Other)
  Sender: FDA-Public Use
  Company Number: None

PATIENT
  Age: 22 Year
  Sex: Male
  Weight: 63.05 kg

DRUGS (1)
  1. ACNEFREE DAILY SKIN THERAPY ACNE PADS [Suspect]
     Active Substance: SALICYLIC ACID
     Indication: ACNE
     Dosage: APPLIED TO A SURFACE, USUALLY THE SKIN
     Route: 061
     Dates: start: 20160817, end: 20160817

REACTIONS (2)
  - Burning sensation [None]
  - Skin discolouration [None]

NARRATIVE: CASE EVENT DATE: 20160818
